FAERS Safety Report 4581854-5 (Version None)
Quarter: 2005Q1

REPORT INFORMATION
  Report Type: 
  Country: None (occurrence: None)
  Receive Date: 20050214
  Receipt Date: 20040322
  Transmission Date: 20050727
  Serious: Yes (Hospitalization)
  Sender: FDA-Public Use
  Company Number: US-GLAXOSMITHKLINE-A0503864A

PATIENT
  Age: 15 Year
  Sex: Male

DRUGS (3)
  1. LAMICTAL [Suspect]
     Indication: AUTISM
     Route: 048
     Dates: start: 20031001
  2. RISPERDAL [Concomitant]
  3. CONCERTA [Concomitant]

REACTIONS (1)
  - AGITATION [None]
